FAERS Safety Report 14454685 (Version 2)
Quarter: 2019Q4

REPORT INFORMATION
  Report Type: Spontaneous
  Country: PT (occurrence: PT)
  Receive Date: 20180129
  Receipt Date: 20191115
  Transmission Date: 20200122
  Serious: Yes (Hospitalization, Congenital Anomaly, Other)
  Sender: FDA-Public Use
  Company Number: PT-MYLANLABS-2018M1005012

PATIENT
  Age: 23 Day
  Sex: Male

DRUGS (4)
  1. PREDNISOLONE. [Suspect]
     Active Substance: PREDNISOLONE
     Indication: PRODUCT USED FOR UNKNOWN INDICATION
     Dosage: UNK
     Route: 064
  2. DEXAMETHASONE. [Suspect]
     Active Substance: DEXAMETHASONE
     Indication: PRODUCT USED FOR UNKNOWN INDICATION
     Dosage: MATERNAL DOSE 8 MG/D ON WEEK 26
     Route: 064
  3. HYDROXYCHLOROQUINE MYLAN [Suspect]
     Active Substance: HYDROXYCHLOROQUINE
     Indication: PRODUCT USED FOR UNKNOWN INDICATION
     Dosage: UNK
     Route: 064
  4. SALBUTAMOL [Suspect]
     Active Substance: ALBUTEROL
     Indication: PRODUCT USED FOR UNKNOWN INDICATION
     Dosage: MATERNAL DOSE: 32MG/D ON WEEK 26
     Route: 064

REACTIONS (18)
  - Cardiomegaly [Unknown]
  - Staphylococcal infection [Not Recovered/Not Resolved]
  - Heart block congenital [Unknown]
  - Rash erythematous [Recovered/Resolved]
  - Lupus pneumonitis [Unknown]
  - Pulmonary embolism [Unknown]
  - C-reactive protein increased [Not Recovered/Not Resolved]
  - Sepsis [Unknown]
  - Premature baby [Unknown]
  - Leukopenia [Unknown]
  - Acute respiratory failure [Unknown]
  - Lung infiltration [Recovered/Resolved]
  - Respiratory failure [Unknown]
  - Thrombocytopenia [Unknown]
  - Tachypnoea [Unknown]
  - Hypoxia [Unknown]
  - Foetal exposure during pregnancy [Recovered/Resolved]
  - Patent ductus arteriosus [Unknown]
